FAERS Safety Report 8454840 (Version 10)
Quarter: 2013Q4

REPORT INFORMATION
  Report Type: Spontaneous
  Country: US (occurrence: US)
  Receive Date: 20120312
  Receipt Date: 20131119
  Transmission Date: 20140711
  Serious: Yes (Hospitalization, Other)
  Sender: FDA-Public Use
  Company Number: US-ASTRAZENECA-2012SE15206

PATIENT
  Age: 61 Year
  Sex: Female
  Weight: 80.7 kg

DRUGS (50)
  1. NEXIUM [Suspect]
     Indication: GASTROOESOPHAGEAL REFLUX DISEASE
     Route: 048
     Dates: end: 201104
  2. NEXIUM [Suspect]
     Indication: GASTROOESOPHAGEAL REFLUX DISEASE
     Route: 048
     Dates: start: 20090102
  3. NEXIUM [Suspect]
     Indication: GASTROOESOPHAGEAL REFLUX DISEASE
     Route: 048
     Dates: start: 201010
  4. NEXIUM [Suspect]
     Indication: GASTROOESOPHAGEAL REFLUX DISEASE
     Route: 048
     Dates: start: 200901, end: 201106
  5. PROMETHAZINE [Concomitant]
     Route: 048
     Dates: start: 20090104
  6. ACETAMINOPHEN COD NO 3 [Concomitant]
     Dosage: 1 TABLET BY MOUTH THREE TIMES A
     Route: 048
     Dates: start: 20090102
  7. METHYLPREDNISOLONE [Concomitant]
     Dosage: 4 MG TAKE AS  DIRECTED
     Dates: start: 20081203
  8. LEVOTHYROXINE [Concomitant]
     Route: 048
     Dates: start: 200707
  9. LEVOTHYROXINE [Concomitant]
     Dates: start: 20080311
  10. LEVOTHYROXINE [Concomitant]
     Route: 048
     Dates: start: 20081227
  11. LEVOTHYROXINE [Concomitant]
     Dates: start: 201012
  12. AMOXICILLIN [Concomitant]
     Route: 048
     Dates: start: 20081202
  13. METFORMIN [Concomitant]
     Route: 048
     Dates: start: 200707
  14. METFORMIN [Concomitant]
     Dates: start: 20080416
  15. METFORMIN [Concomitant]
     Dates: start: 201012
  16. DIGITEK [Concomitant]
     Route: 048
     Dates: start: 200707
  17. DIGITEK [Concomitant]
     Dates: start: 20080416
  18. CARTIA XT [Concomitant]
     Route: 048
     Dates: start: 200707
  19. CARTIA XT [Concomitant]
     Dates: start: 201012
  20. CARTIA XT [Concomitant]
     Dates: start: 20080416
  21. COUMADIN [Concomitant]
     Dosage: 2.5/5 MG 2.5 MG ON MONDAY AND WEDNESDAY
     Route: 048
     Dates: start: 200707
  22. COUMADIN [Concomitant]
     Dates: start: 20080304
  23. COUMADIN [Concomitant]
     Dates: start: 201012
  24. PINDOLOL [Concomitant]
     Route: 048
     Dates: start: 200707
  25. PINDOLOL [Concomitant]
     Dates: end: 2010
  26. PINDOLOL [Concomitant]
     Dates: start: 20080416
  27. CELEXA [Concomitant]
     Route: 048
     Dates: start: 200707
  28. CELEXA [Concomitant]
     Dates: start: 201012
  29. CELEXA [Concomitant]
     Dates: start: 20080719
  30. MACROBID [Concomitant]
     Dates: start: 2010
  31. AMIODARONE HCL [Concomitant]
     Dates: start: 201012
  32. AMIODARONE HCL [Concomitant]
     Dates: start: 20080425
  33. MAVIK [Concomitant]
     Dates: start: 201012
  34. MAVIK [Concomitant]
     Dates: start: 20080428
  35. LASIX [Concomitant]
     Dates: start: 201012
  36. BUSPAR [Concomitant]
     Dates: start: 201012
  37. SULFAMETHOXAZOLE TMP D [Concomitant]
     Dates: start: 20080407
  38. MECLIZINE [Concomitant]
     Dates: start: 20080407
  39. ALPRAZOLAM [Concomitant]
     Dates: start: 20080501
  40. CIPROFLOXACIN HCL [Concomitant]
     Dates: start: 20080501
  41. CIPROFLOXACIN HCL [Concomitant]
     Dosage: 500
     Dates: start: 20080528
  42. PREDNISONE [Concomitant]
  43. SYNTHROID [Concomitant]
  44. MYLANTA [Concomitant]
     Dates: start: 2010
  45. CALCIUM [Concomitant]
     Indication: BONE DISORDER
  46. BIOTIN [Concomitant]
  47. VITAMIN D [Concomitant]
     Indication: VITAMIN D DEFICIENCY
  48. FOLIC ACID [Concomitant]
     Indication: IMMUNE SYSTEM DISORDER
  49. PERCOCET [Concomitant]
     Indication: BACK PAIN
  50. LORTAB [Concomitant]
     Indication: BACK PAIN

REACTIONS (19)
  - Spinal compression fracture [Unknown]
  - Type 2 diabetes mellitus [Unknown]
  - Bone loss [Unknown]
  - Skeletal injury [Unknown]
  - Multiple fractures [Unknown]
  - General physical health deterioration [Unknown]
  - Bone disorder [Unknown]
  - Spinal column injury [Unknown]
  - Joint injury [Unknown]
  - Back injury [Unknown]
  - Cardiac failure congestive [Unknown]
  - Osteoporosis [Unknown]
  - Bone density decreased [Unknown]
  - Depression [Unknown]
  - Osteoarthritis [Unknown]
  - Arthritis [Unknown]
  - Chronic obstructive pulmonary disease [Unknown]
  - Rheumatoid arthritis [Unknown]
  - Vitamin D deficiency [Unknown]
